FAERS Safety Report 4657408-9 (Version None)
Quarter: 2005Q2

REPORT INFORMATION
  Report Type: 
  Country: None (occurrence: None)
  Receive Date: 20050510
  Receipt Date: 20050429
  Transmission Date: 20051028
  Serious: Yes (Hospitalization)
  Sender: FDA-Public Use
  Company Number: US-JNJFOC-20050500186

PATIENT
  Sex: Female
  Weight: 81.19 kg

DRUGS (6)
  1. REMICADE [Suspect]
     Route: 042
  2. REMICADE [Suspect]
     Indication: CROHN'S DISEASE
     Route: 042
  3. IMURAN [Concomitant]
  4. ZOFRAN [Concomitant]
  5. BENADRYL [Concomitant]
     Indication: PREMEDICATION
     Route: 049
  6. TYLENOL (CAPLET) [Concomitant]
     Indication: PREMEDICATION
     Route: 049

REACTIONS (4)
  - INFUSION RELATED REACTION [None]
  - OESOPHAGITIS [None]
  - RASH [None]
  - VOMITING [None]
